FAERS Safety Report 7236647-7 (Version None)
Quarter: 2011Q1

REPORT INFORMATION
  Report Type: 
  Country: None (occurrence: None)
  Receive Date: 20110120
  Receipt Date: 20110113
  Transmission Date: 20110831
  Serious: Yes (Other)
  Sender: FDA-Public Use
  Company Number: US-PFIZER INC-2011009579

PATIENT
  Sex: Female
  Weight: 72.6 kg

DRUGS (10)
  1. DEPO-PROVERA [Suspect]
     Dosage: UNK
     Dates: start: 20060101, end: 20100601
  2. LEVOTHYROXINE [Concomitant]
  3. LANTUS [Suspect]
     Indication: TYPE 2 DIABETES MELLITUS
     Dosage: 10 IU DAILY
     Route: 058
     Dates: start: 20101013
  4. VITAMIN E [Concomitant]
  5. LANTUS [Suspect]
     Dosage: 15 IU DAILY
     Route: 058
  6. PHENYTOIN [Concomitant]
     Dosage: UNK
  7. PHENOBARBITAL [Concomitant]
  8. BUMETANIDE [Concomitant]
  9. LANTUS [Suspect]
     Dosage: 25 IU DAILY
     Route: 058
  10. CALTRATE PLUS [Concomitant]

REACTIONS (5)
  - DEPRESSION [None]
  - IRRITABILITY [None]
  - CONVULSION [None]
  - SLEEP DISORDER [None]
  - ANTISOCIAL BEHAVIOUR [None]
